FAERS Safety Report 8984486 (Version 1)
Quarter: 2012Q4

REPORT INFORMATION
  Report Type: 
  Country: CN (occurrence: CN)
  Receive Date: 20121225
  Receipt Date: 20121225
  Transmission Date: 20130627
  Serious: Yes (Other)
  Sender: FDA-Public Use
  Company Number: PHHY2012CN117194

PATIENT
  Age: 62 Year
  Sex: Male
  Weight: 69 kg

DRUGS (1)
  1. TEGRETOL [Suspect]
     Indication: HYPOAESTHESIA
     Dosage: 0.1 g, BID
     Route: 048
     Dates: start: 20090310, end: 20090313

REACTIONS (2)
  - Vertigo [Unknown]
  - Dizziness [Unknown]
